FAERS Safety Report 10932582 (Version 1)
Quarter: 2015Q1

REPORT INFORMATION
  Report Type: Spontaneous
  Country: US (occurrence: None)
  Receive Date: 20150319
  Receipt Date: 20150319
  Transmission Date: 20150721
  Serious: No
  Sender: FDA-Public Use
  Company Number: None

PATIENT
  Age: 27 Year
  Sex: Male
  Weight: 83.92 kg

DRUGS (1)
  1. HUMIRA [Suspect]
     Active Substance: ADALIMUMAB
     Indication: CROHN^S DISEASE
     Dosage: EVERY 7 DAYS, INJECTION SITES: ABDOMINAL AREA, QUAD
     Dates: start: 20140427, end: 20150318

REACTIONS (5)
  - Fatigue [None]
  - Alopecia [None]
  - Hair growth abnormal [None]
  - Quality of life decreased [None]
  - Muscle atrophy [None]

NARRATIVE: CASE EVENT DATE: 20140427
